FAERS Safety Report 5803226-5 (Version None)
Quarter: 2008Q3

REPORT INFORMATION
  Report Type: 
  Country: None (occurrence: None)
  Receive Date: 20080708
  Receipt Date: 20080625
  Transmission Date: 20090109
  Serious: Yes (Hospitalization)
  Sender: FDA-Public Use
  Company Number: US-ELI_LILLY_AND_COMPANY-US200806005852

PATIENT
  Age: 74 Year
  Sex: Male

DRUGS (9)
  1. CYMBALTA [Suspect]
     Indication: MAJOR DEPRESSION
     Dosage: 60 MG, UNK
  2. CYMBALTA [Suspect]
     Dosage: 90 MG, UNK
  3. REMERON [Concomitant]
  4. METOPROLOL SUCCINATE [Concomitant]
     Dosage: 50 MG, DAILY (1/D)
  5. MIRALAX [Concomitant]
  6. LACTULOSE [Concomitant]
  7. CLONIDINE [Concomitant]
     Indication: HYPERTENSION
     Dosage: 1 D/F, 4/D
  8. HEPARIN [Concomitant]
  9. FLONASE [Concomitant]

REACTIONS (2)
  - DRUG INEFFECTIVE [None]
  - RENAL FAILURE ACUTE [None]
